FAERS Safety Report 4281321-2 (Version None)
Quarter: 2004Q1

REPORT INFORMATION
  Report Type: 
  Country: None (occurrence: None)
  Receive Date: 20040109
  Receipt Date: 20030515
  Transmission Date: 20041129
  Serious: No
  Sender: FDA-Public Use
  Company Number: US037923

PATIENT
  Age: 10 Year
  Sex: Female

DRUGS (1)
  1. KINERET [Suspect]
     Indication: JUVENILE ARTHRITIS
     Dosage: 100 MG, DAILY, SC
     Route: 058

REACTIONS (1)
  - INJECTION SITE REACTION [None]
